FAERS Safety Report 5345583-2 (Version None)
Quarter: 2007Q2

REPORT INFORMATION
  Report Type: 
  Country: None (occurrence: None)
  Receive Date: 20070605
  Receipt Date: 20061020
  Transmission Date: 20071010
  Serious: No
  Sender: FDA-Public Use
  Company Number: US-ASTRAZENECA-2006UW20315

PATIENT
  Age: 41 Year
  Sex: Male
  Weight: 96.2 kg

DRUGS (3)
  1. PRILOSEC [Suspect]
     Indication: GASTROOESOPHAGEAL REFLUX DISEASE
     Route: 048
  2. LIPITOR [Concomitant]
  3. MULTIVITAMIN [Concomitant]

REACTIONS (2)
  - RASH [None]
  - SKIN EXFOLIATION [None]
